FAERS Safety Report 5820203-9 (Version None)
Quarter: 2008Q3

REPORT INFORMATION
  Report Type: 
  Country: None (occurrence: None)
  Receive Date: 20080724
  Receipt Date: 20080718
  Transmission Date: 20090109
  Serious: Yes (Other)
  Sender: FDA-Public Use
  Company Number: PHHY2008JP05605

PATIENT
  Sex: Female

DRUGS (7)
  1. TEGRETOL [Suspect]
     Indication: BIPOLAR I DISORDER
     Dosage: 800 MG/DAY
     Route: 048
     Dates: start: 20050704
  2. TEGRETOL [Suspect]
     Dosage: 100 MG/DAY
     Route: 048
     Dates: start: 20050704, end: 20050714
  3. TEGRETOL [Suspect]
     Dosage: 200 MG/DAY
     Route: 048
     Dates: start: 20050714, end: 20050721
  4. TEGRETOL [Suspect]
     Dosage: 300 MG/DAY
     Route: 048
     Dates: start: 20050721, end: 20050728
  5. TEGRETOL [Suspect]
     Dosage: 400 MG/DAY
     Route: 048
     Dates: start: 20050728, end: 20050910
  6. TEGRETOL [Suspect]
     Dosage: 600 MG/DAY
     Route: 048
     Dates: start: 20050910, end: 20050926
  7. TEGRETOL [Suspect]
     Dosage: 800 MG/DAY
     Route: 048
     Dates: start: 20050926

REACTIONS (6)
  - ACTIVATED PARTIAL THROMBOPLASTIN TIME PROLONGED [None]
  - BLOOD FIBRINOGEN DECREASED [None]
  - CONTUSION [None]
  - GAMMA-GLUTAMYLTRANSFERASE INCREASED [None]
  - PROTHROMBIN LEVEL INCREASED [None]
  - PROTHROMBIN TIME PROLONGED [None]
